FAERS Safety Report 16744564 (Version 1)
Quarter: 2019Q3

REPORT INFORMATION
  Report Type: Spontaneous
  Country: US (occurrence: US)
  Receive Date: 20190827
  Receipt Date: 20190827
  Transmission Date: 20191005
  Serious: No
  Sender: FDA-Public Use
  Company Number: US-MYLANLABS-2019M1072516

PATIENT
  Sex: Female

DRUGS (1)
  1. NIZATIDINE CAPSULES, USP [Suspect]
     Active Substance: NIZATIDINE
     Indication: AUTOIMMUNE DISORDER
     Dosage: UNK
     Route: 048

REACTIONS (1)
  - Therapeutic response unexpected [Not Recovered/Not Resolved]
